FAERS Safety Report 7080989-5 (Version None)
Quarter: 2010Q4

REPORT INFORMATION
  Report Type: 
  Country: None (occurrence: None)
  Receive Date: 20101103
  Receipt Date: 20101020
  Transmission Date: 20110411
  Serious: Yes (Disabling)
  Sender: FDA-Public Use
  Company Number: DE-ACTELION-A-US2010-40868

PATIENT

DRUGS (1)
  1. ILOPROST INHALATION ROW [Suspect]
     Dosage: 2.5 UG, UNK
     Route: 055
     Dates: start: 20100531, end: 20100925

REACTIONS (9)
  - ARTHRALGIA [None]
  - BONE PAIN [None]
  - COCCYDYNIA [None]
  - DIZZINESS [None]
  - HEARING IMPAIRED [None]
  - MEMORY IMPAIRMENT [None]
  - PAIN IN JAW [None]
  - PARAESTHESIA [None]
  - VISUAL IMPAIRMENT [None]
